FAERS Safety Report 20626705 (Version 1)
Quarter: 2022Q1

REPORT INFORMATION
  Report Type: Spontaneous
  Country: US (occurrence: None)
  Receive Date: 20220322
  Receipt Date: 20220322
  Transmission Date: 20220423
  Serious: Yes (Life-Threatening, Hospitalization)
  Sender: FDA-Public Use
  Company Number: None

PATIENT
  Age: 31 Year
  Sex: Female

DRUGS (3)
  1. EVUSHELD [Suspect]
     Active Substance: CILGAVIMAB\TIXAGEVIMAB
     Indication: COVID-19 prophylaxis
     Dosage: FREQUENCY : ONCE;?
     Route: 030
     Dates: start: 20220320, end: 20220320
  2. TIXAGEVIMAB [Concomitant]
     Active Substance: TIXAGEVIMAB
     Dates: start: 20220320
  3. CILGAVIMAB [Concomitant]
     Active Substance: CILGAVIMAB
     Dates: start: 20220320

REACTIONS (2)
  - Anaphylactic reaction [None]
  - Injection related reaction [None]

NARRATIVE: CASE EVENT DATE: 20220320
